FAERS Safety Report 23336814 (Version 1)
Quarter: 2023Q4

REPORT INFORMATION
  Report Type: Report from Study
  Country: US (occurrence: None)
  Receive Date: 20231226
  Receipt Date: 20231226
  Transmission Date: 20240110
  Serious: Yes (Hospitalization)
  Sender: FDA-Public Use
  Company Number: 2023A287603

PATIENT
  Sex: Male

DRUGS (1)
  1. BEVESPI AEROSPHERE [Suspect]
     Active Substance: FORMOTEROL FUMARATE\GLYCOPYRROLATE
     Dosage: UNKNOWN
     Route: 055

REACTIONS (10)
  - Diverticulitis [Unknown]
  - Abscess intestinal [Unknown]
  - Intestinal fistula [Unknown]
  - Chronic obstructive pulmonary disease [Unknown]
  - Post procedural infection [Unknown]
  - Product distribution issue [Unknown]
  - Illness [Unknown]
  - Pain [Unknown]
  - Insomnia [Unknown]
  - Product dose omission issue [Unknown]
